FAERS Safety Report 8340886-1 (Version None)
Quarter: 2012Q2

REPORT INFORMATION
  Report Type: 
  Country: None (occurrence: None)
  Receive Date: 20120507
  Receipt Date: 20120424
  Transmission Date: 20120825
  Serious: Yes (Hospitalization)
  Sender: FDA-Public Use
  Company Number: US-ROCHE-1058793

PATIENT
  Sex: Male
  Weight: 170.1 kg

DRUGS (5)
  1. OXALIPLATIN [Suspect]
     Indication: COLORECTAL CANCER METASTATIC
     Dosage: LAST DOSE PRIOR TO ONSET OF SAE WAS  13/MAR/2012
     Dates: start: 20111004
  2. FLUOROURACIL [Suspect]
     Dosage: INFUSION DOSE
     Dates: start: 20111004
  3. LEUCOVORIN CALCIUM [Suspect]
     Indication: COLORECTAL CANCER METASTATIC
     Dosage: LAST DOSE PRIOR TO ONSET OF SAE WAS  13/MAR/2012
     Dates: start: 20111004
  4. AVASTIN [Suspect]
     Indication: COLORECTAL CANCER METASTATIC
     Dosage: DATE OF MOST RECENT CYCLE PRIOR TO ONSET:13/MAR/2012
     Dates: start: 20111004
  5. FLUOROURACIL [Suspect]
     Indication: COLORECTAL CANCER METASTATIC
     Dosage: BOLUS, LAST DOSE PRIOR TO ONSET OF SAE WAS  13/MAR/2012
     Dates: start: 20111004

REACTIONS (1)
  - POLYARTHRITIS [None]
